FAERS Safety Report 8473053-1 (Version None)
Quarter: 2012Q2

REPORT INFORMATION
  Report Type: 
  Country: None (occurrence: None)
  Receive Date: 20120627
  Receipt Date: 20120625
  Transmission Date: 20120825
  Serious: Yes (Other)
  Sender: FDA-Public Use
  Company Number: ES-ROCHE-1081805

PATIENT
  Age: 53 Year
  Sex: Female

DRUGS (2)
  1. MABTHERA [Suspect]
     Indication: RHEUMATOID ARTHRITIS
     Route: 042
     Dates: start: 20120224, end: 20120309
  2. MABTHERA [Suspect]
     Indication: BEHCET'S SYNDROME

REACTIONS (6)
  - PARAESTHESIA [None]
  - HEADACHE [None]
  - NAUSEA [None]
  - PHONOPHOBIA [None]
  - PHOTOPHOBIA [None]
  - DIZZINESS [None]
